FAERS Safety Report 8533233 (Version 2)
Quarter: 2015Q1

REPORT INFORMATION
  Report Type: Report from Study
  Country: US (occurrence: US)
  Receive Date: 20120427
  Receipt Date: 20150227
  Transmission Date: 20150721
  Serious: Yes (Hospitalization, Other)
  Sender: FDA-Public Use
  Company Number: US-PFIZER INC-2012094372

PATIENT
  Age: 76 Year
  Sex: Male
  Weight: 90 kg

DRUGS (2)
  1. SUNITINIB MALATE [Suspect]
     Active Substance: SUNITINIB MALATE
     Indication: MALIGNANT MELANOMA
     Dosage: 37.5 MG, QD ON DAYS 1-28
     Route: 048
     Dates: start: 20120123
  2. BEVACIZUMAB [Suspect]
     Active Substance: BEVACIZUMAB
     Indication: MALIGNANT MELANOMA
     Dosage: 5 MG/KG OVER 30-90 MIN ON DAYS1, 15 AND 29
     Route: 042
     Dates: start: 20120123

REACTIONS (4)
  - Haemolytic uraemic syndrome [Recovered/Resolved]
  - Blood creatinine increased [Unknown]
  - Haptoglobin decreased [Unknown]
  - Platelet count decreased [Unknown]

NARRATIVE: CASE EVENT DATE: 20120402
